FAERS Safety Report 14992149 (Version 1)
Quarter: 2018Q2

REPORT INFORMATION
  Report Type: Spontaneous
  Country: DE (occurrence: DE)
  Receive Date: 20180608
  Receipt Date: 20180608
  Transmission Date: 20180711
  Serious: Yes (Hospitalization)
  Sender: FDA-Public Use
  Company Number: DE-TEVA-2018-DE-903078

PATIENT
  Age: 40 Year
  Sex: Female
  Weight: 62 kg

DRUGS (2)
  1. COPAXONE [Suspect]
     Active Substance: GLATIRAMER ACETATE
     Dosage: 40 MG, EVERY 3 WEEKS, READY-TO-SPRAY
     Route: 058
  2. ENTOCORT RETARDKAPSELN [Concomitant]
     Dosage: 6 MG, 1-0-0-0, TABLETTEN
     Route: 048

REACTIONS (4)
  - Dyspnoea [Recovered/Resolved]
  - General physical health deterioration [Recovered/Resolved]
  - Abdominal pain lower [Recovered/Resolved]
  - Palpitations [Recovered/Resolved]
